FAERS Safety Report 8795903 (Version 2)
Quarter: 2012Q4

REPORT INFORMATION
  Report Type: 
  Country: IT (occurrence: IT)
  Receive Date: 20120919
  Receipt Date: 20120928
  Transmission Date: 20130627
  Serious: Yes (Life-Threatening, Hospitalization)
  Sender: FDA-Public Use
  Company Number: IT-PFIZER INC-2012230757

PATIENT
  Age: 24 Year
  Sex: Female

DRUGS (3)
  1. XANAX [Suspect]
     Indication: DEPRESSION
     Dosage: 2 mg (8 unit dose of 0.25mg), 1x/day
     Route: 048
     Dates: start: 20120904, end: 20120904
  2. DEPAKIN CHRONO [Suspect]
     Indication: DEPRESSION
     Dosage: 4000 mg (8 unit dose of 500 mg), 1x/day
     Route: 048
     Dates: start: 20120904, end: 20120904
  3. SERTRALINE [Suspect]
     Indication: DEPRESSION
     Dosage: 800 mg (8 unit dose of 100 mg), 1x/day
     Route: 048
     Dates: start: 20120904, end: 20120904

REACTIONS (1)
  - Suicide attempt [Unknown]
